FAERS Safety Report 11655555 (Version 1)
Quarter: 2015Q4

REPORT INFORMATION
  Report Type: Spontaneous
  Country: US (occurrence: US)
  Receive Date: 20151023
  Receipt Date: 20151023
  Transmission Date: 20160304
  Serious: Yes (Disabling)
  Sender: FDA-Public Use
  Company Number: US-BAYER-2015-446562

PATIENT
  Sex: Male

DRUGS (1)
  1. CIPRO [Suspect]
     Active Substance: CIPROFLOXACIN HYDROCHLORIDE
     Indication: PROSTATITIS
     Dosage: UNK

REACTIONS (9)
  - Headache [None]
  - Anosmia [None]
  - Ageusia [None]
  - Eye pain [None]
  - Vision blurred [None]
  - Burning sensation [None]
  - Disability [None]
  - Tinnitus [None]
  - Bedridden [None]
